FAERS Safety Report 25608237 (Version 1)
Quarter: 2025Q3

REPORT INFORMATION
  Report Type: Spontaneous
  Country: EU (occurrence: EU)
  Receive Date: 20250725
  Receipt Date: 20250725
  Transmission Date: 20251021
  Serious: Yes (Other)
  Sender: VISTAPHARM
  Company Number: EU-VISTAPHARM-2025-IT-000045

PATIENT
  Age: 51 Year
  Sex: Female

DRUGS (4)
  1. LACOSAMIDE [Suspect]
     Active Substance: LACOSAMIDE
     Indication: Seizure
  2. FLUVOXAMINE [Suspect]
     Active Substance: FLUVOXAMINE
     Indication: Psychiatric symptom
  3. DIAZEPAM [Concomitant]
     Active Substance: DIAZEPAM
  4. ARIPIPRAZOLE [Suspect]
     Active Substance: ARIPIPRAZOLE
     Indication: Psychiatric symptom

REACTIONS (2)
  - Drug interaction [Unknown]
  - Rhabdomyolysis [Unknown]
